FAERS Safety Report 18089931 (Version 1)
Quarter: 2020Q3

REPORT INFORMATION
  Report Type: Report from Study
  Country: None (occurrence: DE)
  Receive Date: 20200730
  Receipt Date: 20200730
  Transmission Date: 20201103
  Serious: Yes (Death)
  Sender: FDA-Public Use
  Company Number: DE-ABBVIE-20K-062-3503599-00

PATIENT
  Age: 71 Year
  Sex: Female

DRUGS (5)
  1. METHOTREXATE. [Concomitant]
     Active Substance: METHOTREXATE
     Dates: start: 2011
  2. HUMIRA [Suspect]
     Active Substance: ADALIMUMAB
     Indication: RHEUMATOID ARTHRITIS
     Route: 058
     Dates: start: 201003, end: 201005
  3. METHOTREXATE. [Concomitant]
     Active Substance: METHOTREXATE
     Indication: PRODUCT USED FOR UNKNOWN INDICATION
     Dosage: STOP DATE: BETWEEN 10JUN2010?17MAR2011
  4. METHOTREXATE. [Concomitant]
     Active Substance: METHOTREXATE
     Dosage: START DATE: BETWEEN 10JUN2010?17MAR2011
     Dates: end: 2011
  5. METHOTREXATE. [Concomitant]
     Active Substance: METHOTREXATE
     Dates: start: 201109

REACTIONS (1)
  - Death [Fatal]

NARRATIVE: CASE EVENT DATE: 20190518
